FAERS Safety Report 5095245-4 (Version None)
Quarter: 2006Q3

REPORT INFORMATION
  Report Type: 
  Country: None (occurrence: None)
  Receive Date: 20060901
  Receipt Date: 20060327
  Transmission Date: 20061208
  Serious: Yes (Death, Hospitalization, Other)
  Sender: FDA-Public Use
  Company Number: PHEH2006US04068

PATIENT
  Age: 70 Year
  Sex: Female

DRUGS (13)
  1. EXJADE [Suspect]
     Indication: BLOOD IRON INCREASED
     Dosage: UNK, UNK
     Route: 048
     Dates: start: 20060504, end: 20060522
  2. EXJADE [Suspect]
     Dosage: 250 MG, QD
     Dates: start: 20060214, end: 20060218
  3. ASCORBIC ACID [Concomitant]
  4. AMICAR [Concomitant]
  5. CARDIZEM [Concomitant]
     Dosage: 120 MG, QD
  6. CARDIZEM [Concomitant]
     Dosage: 180 MG, QD
  7. FOLIC ACID [Concomitant]
  8. BENICAR [Concomitant]
     Dosage: 40 MG, QD
     Route: 048
  9. VITAMIN B6 [Concomitant]
  10. TAMBOCOR [Concomitant]
  11. FLECAINIDE ACETATE [Concomitant]
     Dosage: 1 TAB BID
     Route: 048
  12. LINEZOLID [Concomitant]
     Dosage: 600 MG, BID
     Route: 048
  13. ARANESP [Concomitant]
     Indication: ANAEMIA

REACTIONS (30)
  - ANAEMIA [None]
  - ATRIAL FIBRILLATION [None]
  - BLOOD ALBUMIN DECREASED [None]
  - BLOOD CREATININE INCREASED [None]
  - BLOOD GLUCOSE INCREASED [None]
  - BLOOD POTASSIUM DECREASED [None]
  - BLOOD POTASSIUM INCREASED [None]
  - BLOOD UREA INCREASED [None]
  - CELLULITIS [None]
  - CHILLS [None]
  - CREATININE RENAL CLEARANCE DECREASED [None]
  - DEATH [None]
  - DYSPNOEA [None]
  - GASTROINTESTINAL HAEMORRHAGE [None]
  - GLOBULINS INCREASED [None]
  - GLOMERULAR FILTRATION RATE DECREASED [None]
  - HAEMATOMA [None]
  - INJECTION SITE INFECTION [None]
  - LOBAR PNEUMONIA [None]
  - MYELODYSPLASTIC SYNDROME [None]
  - NEUTROPENIA [None]
  - NEUTROPHIL FUNCTION DISORDER [None]
  - ORAL MUCOSAL PETECHIAE [None]
  - PROTEIN TOTAL DECREASED [None]
  - PROTEIN TOTAL INCREASED [None]
  - PYREXIA [None]
  - SEPTIC PHLEBITIS [None]
  - SKIN NODULE [None]
  - THROMBOCYTOPENIA [None]
  - WOUND INFECTION STAPHYLOCOCCAL [None]
